FAERS Safety Report 14702264 (Version 5)
Quarter: 2021Q2

REPORT INFORMATION
  Report Type: Report from Study
  Country: DE (occurrence: DE)
  Receive Date: 20180401
  Receipt Date: 20210521
  Transmission Date: 20210716
  Serious: Yes (Hospitalization, Other)
  Sender: FDA-Public Use
  Company Number: DE-SHIRE-DE201812131

PATIENT
  Age: 41 Year
  Weight: 61 kg

DRUGS (16)
  1. ADVATE [Suspect]
     Active Substance: ANTIHEMOPHILIC FACTOR, HUMAN RECOMBINANT
     Dosage: 1500 INTERNATIONAL UNIT, 1X/WEEK
     Route: 042
     Dates: start: 20110804
  2. ADVATE [Suspect]
     Active Substance: ANTIHEMOPHILIC FACTOR, HUMAN RECOMBINANT
     Indication: HAEMORRHAGE PROPHYLAXIS
     Dosage: 1500 IU, 1X/WEEK
     Route: 042
     Dates: start: 20110401, end: 20171127
  3. ETORICOXIB. [Suspect]
     Active Substance: ETORICOXIB
     Indication: HAEMOPHILIC ARTHROPATHY
     Dosage: 90 MILLIGRAM, QD
     Route: 065
     Dates: start: 20110804, end: 20171128
  4. ADVATE [Suspect]
     Active Substance: ANTIHEMOPHILIC FACTOR, HUMAN RECOMBINANT
     Dosage: 1500 INTERNATIONAL UNIT, 1X/WEEK
     Route: 042
     Dates: start: 20110804
  5. ETORICOXIB. [Suspect]
     Active Substance: ETORICOXIB
     Indication: ARTHRALGIA
     Dosage: 90 MILLIGRAM, QD
     Route: 065
     Dates: start: 20171126, end: 20171126
  6. ADVATE [Suspect]
     Active Substance: ANTIHEMOPHILIC FACTOR, HUMAN RECOMBINANT
     Indication: HAEMORRHAGE PROPHYLAXIS
     Dosage: 1500 IU, 1X/WEEK
     Route: 042
     Dates: start: 20110401, end: 20171127
  7. ARCOXIA [Concomitant]
     Active Substance: ETORICOXIB
     Indication: ARTHRALGIA
     Dosage: 90 MILLIGRAM, QD
     Route: 048
     Dates: start: 20110804, end: 20130121
  8. PANTOPRAZOLE SODIUM. [Concomitant]
     Active Substance: PANTOPRAZOLE SODIUM
     Dosage: 40 MILLIGRAM, QD
     Route: 048
     Dates: start: 20141209, end: 20141214
  9. ADVATE [Suspect]
     Active Substance: ANTIHEMOPHILIC FACTOR, HUMAN RECOMBINANT
     Dosage: 1500 INTERNATIONAL UNIT, 1X/WEEK
     Route: 042
     Dates: start: 20110804
  10. ADVATE [Suspect]
     Active Substance: ANTIHEMOPHILIC FACTOR, HUMAN RECOMBINANT
     Indication: HAEMORRHAGE PROPHYLAXIS
     Dosage: 1500 IU, 1X/WEEK
     Route: 042
     Dates: start: 20110401, end: 20171127
  11. ADVATE [Suspect]
     Active Substance: ANTIHEMOPHILIC FACTOR, HUMAN RECOMBINANT
     Dosage: 1500 UNK
     Route: 042
     Dates: start: 20110401
  12. VOLTAREN RESINAT [Concomitant]
     Active Substance: DICLOFENAC
     Indication: ARTHRALGIA
     Dosage: 75 MILLIGRAM, QD
     Route: 048
     Dates: start: 20130122
  13. NOVAMINE [Concomitant]
     Active Substance: ALANINE\ARGININE\ASPARTIC ACID\GLUTAMIC ACID\GLYCINE\HISTIDINE\ISOLEUCINE\LEUCINE\LYSINE ACETATE\METHIONINE\PHENYLALANINE\PROLINE\SERINE\THREONINE\TRYPTOPHAN\TYROSINE\VALINE
     Dosage: 500 MILLIGRAM, QD
     Route: 065
     Dates: start: 20141209, end: 20141214
  14. ADVATE [Suspect]
     Active Substance: ANTIHEMOPHILIC FACTOR, HUMAN RECOMBINANT
     Dosage: 1500 UNK
     Route: 042
     Dates: start: 20110401
  15. ADVATE [Suspect]
     Active Substance: ANTIHEMOPHILIC FACTOR, HUMAN RECOMBINANT
     Dosage: 1500 UNK
     Route: 042
     Dates: start: 20110401
  16. OXYCODON [Concomitant]
     Active Substance: OXYCODONE
     Dosage: 10 MILLIGRAM, QD
     Route: 065
     Dates: start: 20141209, end: 20141214

REACTIONS (10)
  - Haemarthrosis [Recovered/Resolved]
  - Pruritus [Recovered/Resolved]
  - Rash [Recovered/Resolved]
  - Loss of consciousness [Recovered/Resolved]
  - Rash [Recovered/Resolved]
  - Face oedema [Recovered/Resolved]
  - Fall [Recovered/Resolved]
  - Epilepsy [Recovered/Resolved]
  - Contusion [Recovered/Resolved]
  - Arthropathy [Recovered/Resolved]

NARRATIVE: CASE EVENT DATE: 20141114
